FAERS Safety Report 7241453-3 (Version None)
Quarter: 2011Q1

REPORT INFORMATION
  Report Type: 
  Country: None (occurrence: None)
  Receive Date: 20110124
  Receipt Date: 20110118
  Transmission Date: 20110831
  Serious: Yes (Death, Other)
  Sender: FDA-Public Use
  Company Number: JP-ROCHE-754599

PATIENT
  Sex: Male
  Weight: 67 kg

DRUGS (12)
  1. FAMOTIDINE [Concomitant]
     Route: 048
     Dates: start: 20091014, end: 20100322
  2. 5-FU [Concomitant]
     Dosage: ROUTE: INTRAVENOUS BOLUS
     Route: 050
     Dates: start: 20091013, end: 20100319
  3. ELPLAT [Concomitant]
     Route: 041
     Dates: start: 20091013, end: 20091109
  4. GRANISETRON HCL [Concomitant]
     Route: 041
     Dates: start: 20091013, end: 20100319
  5. CELECOXIB [Concomitant]
     Dosage: DRUG: CELECOX
     Route: 048
     Dates: start: 20091013, end: 20091204
  6. AVASTIN [Suspect]
     Indication: COLON CANCER METASTATIC
     Route: 041
     Dates: start: 20091013, end: 20100319
  7. 5-FU [Concomitant]
     Dosage: ROUTE: INTRAVENOUS DRIP
     Route: 050
     Dates: start: 20091013, end: 20100301
  8. DEXART [Concomitant]
     Route: 041
     Dates: start: 20091013, end: 20100319
  9. LEVOFOLINATE [Concomitant]
     Route: 041
     Dates: start: 20091013, end: 20100319
  10. KYTRIL [Concomitant]
     Route: 048
     Dates: start: 20091014, end: 20100322
  11. MUCOSTA [Concomitant]
     Route: 048
     Dates: start: 20091013, end: 20091204
  12. BETAMETHASONE [Concomitant]
     Route: 048
     Dates: start: 20091014, end: 20100322

REACTIONS (2)
  - TUMOUR HAEMORRHAGE [None]
  - DISEASE PROGRESSION [None]
